FAERS Safety Report 5363085-4 (Version None)
Quarter: 2007Q2

REPORT INFORMATION
  Report Type: 
  Country: None (occurrence: None)
  Receive Date: 20070615
  Receipt Date: 20070531
  Transmission Date: 20071010
  Serious: Yes (Hospitalization)
  Sender: FDA-Public Use
  Company Number: 2007JP002215

PATIENT
  Sex: Female

DRUGS (17)
  1. PROGRAF [Suspect]
     Indication: RHEUMATOID ARTHRITIS
     Dosage: SEE IMAGE
     Route: 048
     Dates: start: 20070101, end: 20070201
  2. PROGRAF [Suspect]
     Indication: RHEUMATOID ARTHRITIS
     Dosage: SEE IMAGE
     Route: 048
     Dates: start: 20070201, end: 20070301
  3. PROGRAF [Suspect]
     Indication: RHEUMATOID ARTHRITIS
     Dosage: SEE IMAGE
     Route: 048
     Dates: start: 20070301, end: 20070423
  4. NEO-AMUNOLL(NON-PYRINE COLD PREPARATION) [Suspect]
     Dosage: 1 G, TID,
     Dates: start: 20070414
  5. HUSTAZOL(CLOPERASTINE HYDROCHLORIDE) [Suspect]
     Dosage: 10 MG, TID,
     Dates: start: 20070414
  6. TRANSAMIN (TRANEXAMIC ACID) [Suspect]
     Dosage: 250 MG, TID
     Dates: start: 20070414
  7. AZULFIDINE [Concomitant]
  8. SULINDAC [Concomitant]
  9. MERALLURIDE (MERALLURIDE) [Concomitant]
  10. TOCOPHERYL ACETATE (TOCOPHERYL ACETATE) [Concomitant]
  11. MUCOSTA (REBAMIPIDE) [Concomitant]
  12. CEPHADOL (DIFENIDOL HYDROCHLORIDE) [Concomitant]
  13. FLUITRAN (TRICHLORMETHIAZIDE) [Concomitant]
  14. ASPIRIN [Concomitant]
  15. VOLTAREN [Concomitant]
  16. GOODMIN (BROTIZOLAM) [Concomitant]
  17. KEISHI-KA-JUTSU-BU-TO [Concomitant]

REACTIONS (7)
  - CONDITION AGGRAVATED [None]
  - DYSPHONIA [None]
  - EOSINOPHILIC PNEUMONIA [None]
  - HYPEREOSINOPHILIC SYNDROME [None]
  - HYPOXIA [None]
  - RHEUMATOID LUNG [None]
  - URTICARIA [None]
